FAERS Safety Report 19834855 (Version 4)
Quarter: 2022Q4

REPORT INFORMATION
  Report Type: Spontaneous
  Country: ES (occurrence: ES)
  Receive Date: 20210915
  Receipt Date: 20221031
  Transmission Date: 20230113
  Serious: Yes (Other)
  Sender: FDA-Public Use
  Company Number: ES-PFM-2021-07352

PATIENT
  Age: 70 Year
  Sex: Male

DRUGS (5)
  1. BRAFTOVI [Suspect]
     Active Substance: ENCORAFENIB
     Indication: Malignant melanoma
     Dosage: 300 MG, QD (1/DAY)
     Route: 048
     Dates: start: 20201201
  2. BRAFTOVI [Suspect]
     Active Substance: ENCORAFENIB
     Indication: Metastases to meninges
     Dosage: UNK
     Route: 065
     Dates: start: 20201220
  3. MEKTOVI [Suspect]
     Active Substance: BINIMETINIB
     Indication: Malignant melanoma
     Dosage: 30 MG, BID (2/DAY)
     Route: 048
     Dates: start: 20201201
  4. MEKTOVI [Suspect]
     Active Substance: BINIMETINIB
     Indication: Metastases to meninges
     Dosage: UNK
     Route: 065
     Dates: start: 20201220
  5. LEVETIRACETAM [Concomitant]
     Active Substance: LEVETIRACETAM
     Indication: Seizure
     Dosage: UNK
     Route: 065

REACTIONS (6)
  - Hydrocephalus [Recovering/Resolving]
  - Intracranial pressure increased [Not Recovered/Not Resolved]
  - Behaviour disorder [Unknown]
  - Bradykinesia [Unknown]
  - Bradyphrenia [Unknown]
  - Abdominal pain upper [Unknown]

NARRATIVE: CASE EVENT DATE: 20210601
